FAERS Safety Report 9845184 (Version 1)
Quarter: 2014Q1

REPORT INFORMATION
  Report Type: Spontaneous
  Country: US (occurrence: None)
  Receive Date: 20140123
  Receipt Date: 20140123
  Transmission Date: 20141002
  Serious: Yes (Life-Threatening, Hospitalization, Disabling)
  Sender: FDA-Public Use
  Company Number: None

PATIENT
  Age: 32 Year
  Sex: Female
  Weight: 65.77 kg

DRUGS (1)
  1. SPRINTEC [Suspect]
     Indication: CONTRACEPTION
     Dosage: 1 PILL DAILY?ONCE DAILY?TAKEN BY MOUTH
     Route: 048
     Dates: start: 20130616, end: 20130812

REACTIONS (2)
  - Pulmonary embolism [None]
  - Impaired work ability [None]
